FAERS Safety Report 16462467 (Version 2)
Quarter: 2019Q4

REPORT INFORMATION
  Report Type: Spontaneous
  Country: JP (occurrence: JP)
  Receive Date: 20190621
  Receipt Date: 20191211
  Transmission Date: 20200122
  Serious: Yes (Other)
  Sender: FDA-Public Use
  Company Number: JP-AUROBINDO-AUR-APL-2019-035580

PATIENT
  Age: 78 Year
  Sex: Female

DRUGS (6)
  1. PRALATREXATE INJECTION [Suspect]
     Active Substance: PRALATREXATE
     Dosage: UNK, SIXTH ADMINISTRATION
     Route: 042
     Dates: start: 201806
  2. PRALATREXATE INJECTION [Suspect]
     Active Substance: PRALATREXATE
     Indication: PERIPHERAL T-CELL LYMPHOMA UNSPECIFIED RECURRENT
     Dosage: UNK
     Route: 042
     Dates: start: 201806
  3. FOLIC ACID. [Concomitant]
     Active Substance: FOLIC ACID
     Indication: PRODUCT USED FOR UNKNOWN INDICATION
     Dosage: UNK
     Route: 065
  4. PRALATREXATE INJECTION [Suspect]
     Active Substance: PRALATREXATE
     Dosage: UNK, THIRD CYCLE OF THE ADMINISTRATION
     Route: 042
     Dates: start: 201806
  5. PRALATREXATE INJECTION [Suspect]
     Active Substance: PRALATREXATE
     Dosage: UNK, SECOND CYCLE OF THE ADMINISTRATION
     Route: 042
     Dates: start: 201806
  6. VITAMIN B12 [Concomitant]
     Active Substance: CYANOCOBALAMIN
     Indication: PRODUCT USED FOR UNKNOWN INDICATION
     Dosage: UNK
     Route: 065

REACTIONS (3)
  - Stomatitis [Unknown]
  - Pneumonia [Unknown]
  - Tonsillitis [Recovered/Resolved]

NARRATIVE: CASE EVENT DATE: 20180618
